FAERS Safety Report 6661513-5 (Version None)
Quarter: 2010Q1

REPORT INFORMATION
  Report Type: 
  Country: None (occurrence: None)
  Receive Date: 20100331
  Receipt Date: 20100326
  Transmission Date: 20100710
  Serious: Yes (Congenital Anomaly, Other)
  Sender: FDA-Public Use
  Company Number: GB-BRISTOL-MYERS SQUIBB COMPANY-14053466

PATIENT
  Age: 33 Year
  Sex: Female

DRUGS (10)
  1. SUSTIVA [Suspect]
     Indication: HIV INFECTION
     Dosage: PTC TO 4 WEEKS POST LMP TRANSPLACENTAL FROM 2007
     Route: 048
     Dates: start: 20021001, end: 20070816
  2. NEVIRAPINE [Suspect]
     Indication: HIV INFECTION
     Dosage: 3 WEEKS POST LMP TO 7 WEEKS POST LMP TRANSPLACENTAL
     Route: 048
     Dates: start: 20070801, end: 20070905
  3. KIVEXA [Suspect]
     Indication: HIV INFECTION
     Dosage: 1 DOSAGE FORM= 1 TABLET (ABACAVIR 600MG+LAMIVUDINE 300MG).PTC TO 9 WEEKS. TRANSPLACENTAL
     Route: 048
     Dates: start: 20070101, end: 20070901
  4. COMBIVIR [Suspect]
     Indication: HIV INFECTION
     Dosage: 1 DF=TAB(ZIDOVUD 300MG+LAMIVUD 150MG) 9 1/2WEEKS TO DELIV TAKEN ON 10SEP07,5SEP07
     Route: 048
     Dates: start: 20070801, end: 20070905
  5. KALETRA [Suspect]
     Indication: HIV INFECTION
     Dosage: 2 DOSAGE FORM=2TABS (LOPINAVIR 200MG+ RITONAVIR 50MG).9 1/2 WEEKS TO DELIVERY. TRANSPLACENTAL
     Route: 048
     Dates: start: 20070920
  6. LAMIVUDINE [Suspect]
  7. LOPINAVIR [Suspect]
  8. RITONAVIR [Suspect]
  9. VIRAMUNE [Suspect]
     Indication: HIV INFECTION
     Dosage: TRANSPLACENTAL
     Route: 048
     Dates: start: 20070816, end: 20070905
  10. ZIDOVUDINE [Suspect]

REACTIONS (10)
  - ABORTION INDUCED [None]
  - CARDIAC MALPOSITION [None]
  - CONGENITAL HEPATOBILIARY ANOMALY [None]
  - DEFORMITY THORAX [None]
  - DIAPHRAGMATIC APLASIA [None]
  - EXOMPHALOS [None]
  - FOETAL DISORDER [None]
  - MICROCEPHALY [None]
  - PNEUMOTHORAX [None]
  - PREGNANCY [None]
